FAERS Safety Report 9713822 (Version 1)
Quarter: 2013Q4

REPORT INFORMATION
  Report Type: Report from Study
  Country: IE (occurrence: IE)
  Receive Date: 20131126
  Receipt Date: 20131126
  Transmission Date: 20140711
  Serious: Yes (Other)
  Sender: FDA-Public Use
  Company Number: IE-GLAXOSMITHKLINE-A0612251F

PATIENT
  Age: 44 Year
  Sex: Female
  Weight: 67.2 kg

DRUGS (3)
  1. LAPATINIB [Suspect]
     Indication: BREAST CANCER METASTATIC
     Dosage: 500MG PER DAY
     Route: 048
     Dates: start: 20060623
  2. DOCETAXEL [Suspect]
     Indication: BREAST CANCER METASTATIC
     Dosage: 75MGM2 CYCLIC
     Route: 042
     Dates: start: 20060623
  3. TRASTUZUMAB [Suspect]
     Indication: BREAST CANCER METASTATIC
     Dosage: 4MGK WEEKLY
     Route: 042
     Dates: start: 20060623

REACTIONS (1)
  - Ejection fraction decreased [Recovered/Resolved]
